FAERS Safety Report 19787041 (Version 1)
Quarter: 2021Q3

REPORT INFORMATION
  Report Type: Spontaneous
  Country: US (occurrence: US)
  Receive Date: 20210903
  Receipt Date: 20210903
  Transmission Date: 20211014
  Serious: No
  Sender: FDA-Public Use
  Company Number: US-PFIZER INC-202101090026

PATIENT
  Age: 50 Year
  Sex: Female
  Weight: 54.88 kg

DRUGS (2)
  1. XELJANZ XR [Suspect]
     Active Substance: TOFACITINIB CITRATE
     Indication: RHEUMATOID ARTHRITIS
     Dosage: 11 MG, DAILY
     Route: 048
     Dates: start: 202106
  2. VITAMIN C [Concomitant]
     Active Substance: ASCORBIC ACID
     Dosage: UNK

REACTIONS (8)
  - Rhinorrhoea [Recovered/Resolved]
  - Pain [Unknown]
  - Dizziness [Unknown]
  - Head injury [Unknown]
  - Fall [Unknown]
  - Arthralgia [Unknown]
  - Sinusitis [Recovered/Resolved]
  - Neck pain [Unknown]

NARRATIVE: CASE EVENT DATE: 202106
